FAERS Safety Report 16566897 (Version 20)
Quarter: 2024Q1

REPORT INFORMATION
  Report Type: Report from Study
  Country: JP (occurrence: JP)
  Receive Date: 20190712
  Receipt Date: 20240227
  Transmission Date: 20240410
  Serious: Yes (Hospitalization)
  Sender: FDA-Public Use
  Company Number: JP-ABBVIE-18S-087-2442944-00

PATIENT
  Age: 51 Year
  Sex: Female

DRUGS (10)
  1. CARBIDOPA\LEVODOPA [Suspect]
     Active Substance: CARBIDOPA\LEVODOPA
     Indication: Parkinson^s disease
     Dosage: MD: 6.3 ML?CD: 2.1 ML/HR X 16 HRS?ED: 1.3 ML/UNIT X 4
     Route: 050
     Dates: start: 20170718, end: 20190611
  2. CARBIDOPA\LEVODOPA [Suspect]
     Active Substance: CARBIDOPA\LEVODOPA
     Dosage: MD: 6.3 ML, CD: 3.2 ML/HR ? 16 HRS, ED: 1.0 ML/UNIT ? 2
     Route: 050
     Dates: start: 20190612
  3. SUVOREXANT [Concomitant]
     Active Substance: SUVOREXANT
     Indication: Insomnia
     Route: 048
  4. CARBIDOPA AND LEVODOPA [Concomitant]
     Active Substance: CARBIDOPA\LEVODOPA
     Indication: Parkinson^s disease
     Route: 048
  5. CLONAZEPAM [Concomitant]
     Active Substance: CLONAZEPAM
     Indication: Rapid eye movement sleep behaviour disorder
     Route: 048
  6. TRIHEXYPHENIDYL HYDROCHLORIDE [Concomitant]
     Active Substance: TRIHEXYPHENIDYL HYDROCHLORIDE
     Indication: Parkinson^s disease
     Dates: end: 20171226
  7. AMANTADINE HYDROCHLORIDE [Concomitant]
     Active Substance: AMANTADINE HYDROCHLORIDE
     Indication: Parkinson^s disease
     Dates: end: 20180801
  8. DIETARY SUPPLEMENT\PROBIOTICS [Concomitant]
     Active Substance: DIETARY SUPPLEMENT\PROBIOTICS NOS
     Indication: Prophylaxis
     Dosage: LACTOMIN AND AMYLOLYTIC BACILLUS
     Dates: end: 20170808
  9. BENFOTIAMINE;CYANOCOBALAMIN;PYRIDOXINE HYDROCHLORIDE [Concomitant]
     Indication: Prophylaxis
     Dates: end: 20190620
  10. CARBIDOPA\LEVODOPA [Concomitant]
     Active Substance: CARBIDOPA\LEVODOPA
     Indication: Product used for unknown indication

REACTIONS (20)
  - Device dislocation [Recovered/Resolved]
  - Bezoar [Recovered/Resolved]
  - Arthritis [Unknown]
  - Medical device site haemorrhage [Unknown]
  - Miliaria [Unknown]
  - Medical device site pain [Unknown]
  - Mobility decreased [Unknown]
  - Mobility decreased [Unknown]
  - Intentional product misuse [Unknown]
  - Drug ineffective [Unknown]
  - Stoma site extravasation [Unknown]
  - Stoma site erythema [Unknown]
  - On and off phenomenon [Unknown]
  - Drug ineffective [Unknown]
  - Device alarm issue [Unknown]
  - Device issue [Unknown]
  - Device dislocation [Recovered/Resolved]
  - Musculoskeletal stiffness [Unknown]
  - Device dislocation [Unknown]
  - Musculoskeletal stiffness [Recovered/Resolved]

NARRATIVE: CASE EVENT DATE: 20190314
